FAERS Safety Report 9503451 (Version 1)
Quarter: 2013Q1

REPORT INFORMATION
  Report Type: Spontaneous
  Country: US (occurrence: None)
  Receive Date: 20130130
  Receipt Date: 20130130
  Transmission Date: 20140127
  Serious: Yes (Hospitalization, Other)
  Sender: FDA-Public Use
  Company Number: US201007007350

PATIENT
  Age: 66 Year
  Sex: Female

DRUGS (9)
  1. BYETTA [Suspect]
     Indication: DIABETES MELLITUS
     Route: 058
     Dates: start: 2007, end: 2008
  2. EXENATIDE PEN, DISPOSABLE DEVICE [Concomitant]
  3. COUMADIN [Concomitant]
  4. INSULIN [Concomitant]
  5. METFORMIN [Concomitant]
  6. DEMADEX [Concomitant]
  7. HYZARR [Concomitant]
  8. BETAPACE [Concomitant]
  9. CRESTOR [Concomitant]

REACTIONS (2)
  - Pancreatitis acute [None]
  - Off label use [None]
